FAERS Safety Report 17684625 (Version 1)
Quarter: 2020Q2

REPORT INFORMATION
  Report Type: Spontaneous
  Country: US (occurrence: US)
  Receive Date: 20200417
  Receipt Date: 20200417
  Transmission Date: 20200714
  Serious: No
  Sender: FDA-Public Use
  Company Number: None

PATIENT
  Age: 71 Year
  Sex: Male
  Weight: 124 kg

DRUGS (1)
  1. ENOXAPARIN (ENOXAPARIN 150MG/ML INJ,SYRINGE,1ML) [Suspect]
     Active Substance: ENOXAPARIN
     Route: 058
     Dates: start: 20181222, end: 20181229

REACTIONS (1)
  - Haemorrhage [None]

NARRATIVE: CASE EVENT DATE: 20181229
